FAERS Safety Report 6542328-5 (Version None)
Quarter: 2010Q1

REPORT INFORMATION
  Report Type: 
  Country: None (occurrence: None)
  Receive Date: 20100119
  Receipt Date: 20100112
  Transmission Date: 20100710
  Serious: Yes (Other)
  Sender: FDA-Public Use
  Company Number: AT-PFIZER INC-2009312313

PATIENT
  Age: 33 Year
  Sex: Female

DRUGS (1)
  1. SAYANA [Suspect]
     Indication: CONTRACEPTION
     Dosage: UNK
     Route: 058
     Dates: start: 20091125

REACTIONS (3)
  - MENORRHAGIA [None]
  - METRORRHAGIA [None]
  - UTERINE HAEMORRHAGE [None]
